FAERS Safety Report 10010484 (Version 4)
Quarter: 2014Q2

REPORT INFORMATION
  Report Type: Spontaneous
  Country: AU (occurrence: AU)
  Receive Date: 20140314
  Receipt Date: 20140414
  Transmission Date: 20141212
  Serious: Yes (Hospitalization)
  Sender: FDA-Public Use
  Company Number: AU-BIOGENIDEC-2014BI021196

PATIENT
  Age: 51 Year
  Sex: Male

DRUGS (4)
  1. TECFIDERA [Suspect]
     Indication: MULTIPLE SCLEROSIS
     Route: 048
     Dates: start: 20140203, end: 20140308
  2. TECFIDERA [Suspect]
     Indication: MULTIPLE SCLEROSIS
     Route: 048
  3. ENDONE [Concomitant]
  4. CODEINE [Concomitant]

REACTIONS (7)
  - Herpes zoster [Recovered/Resolved]
  - Haematemesis [Unknown]
  - Gastric ulcer perforation [Unknown]
  - Nausea [Unknown]
  - Ear infection [Unknown]
  - Hot flush [Unknown]
  - Feeling abnormal [Unknown]
